FAERS Safety Report 18603326 (Version 9)
Quarter: 2021Q1

REPORT INFORMATION
  Report Type: Report from Study
  Country: AR (occurrence: AR)
  Receive Date: 20201210
  Receipt Date: 20210321
  Transmission Date: 20210419
  Serious: Yes (Hospitalization, Other)
  Sender: FDA-Public Use
  Company Number: AR-EXELIXIS-XL18420035678

PATIENT
  Age: 64 Year
  Sex: Male
  Weight: 70 kg

DRUGS (8)
  1. LEVOTIROXINA [Concomitant]
     Active Substance: LEVOTHYROXINE
  2. ATEZOLIZUMAB. [Suspect]
     Active Substance: ATEZOLIZUMAB
     Dosage: 40 MG, Q3WEEKS
     Dates: start: 20200909, end: 20200930
  3. XL184 [Suspect]
     Active Substance: CABOZANTINIB
     Dosage: 20 MG
     Route: 048
     Dates: start: 20200826
  4. XL184 [Suspect]
     Active Substance: CABOZANTINIB
     Dosage: 20 UNK
     Dates: start: 20200923
  5. XL184 [Suspect]
     Active Substance: CABOZANTINIB
     Indication: HEPATOCELLULAR CARCINOMA
     Dosage: 40 MG, QD
     Route: 048
     Dates: start: 20200730, end: 20200819
  6. XL184 [Suspect]
     Active Substance: CABOZANTINIB
     Dosage: 40 UNK
     Dates: start: 20200909
  7. ATEZOLIZUMAB. [Suspect]
     Active Substance: ATEZOLIZUMAB
     Indication: HEPATOCELLULAR CARCINOMA
     Dosage: 1200 MG, Q3WEEKS
     Route: 042
     Dates: start: 20200730, end: 20200819
  8. LOSARTAN. [Concomitant]
     Active Substance: LOSARTAN

REACTIONS (1)
  - Drug-induced liver injury [Not Recovered/Not Resolved]

NARRATIVE: CASE EVENT DATE: 20200819
